FAERS Safety Report 19245108 (Version 1)
Quarter: 2021Q2

REPORT INFORMATION
  Report Type: Spontaneous
  Country: MU (occurrence: MU)
  Receive Date: 20210512
  Receipt Date: 20210512
  Transmission Date: 20210717
  Serious: Yes (Life-Threatening)
  Sender: FDA-Public Use
  Company Number: MU-ROCHE-2828111

PATIENT
  Age: 59 Year
  Sex: Male

DRUGS (2)
  1. ASPRIN [Concomitant]
     Active Substance: ASPIRIN
     Indication: PRODUCT USED FOR UNKNOWN INDICATION
  2. METALYSE [Suspect]
     Active Substance: TENECTEPLASE
     Indication: MYOCARDIAL INFARCTION
     Dosage: 10,000 UNITS 50 MG
     Route: 065
     Dates: start: 20210502, end: 20210502

REACTIONS (2)
  - Drug ineffective [Unknown]
  - No adverse event [Unknown]

NARRATIVE: CASE EVENT DATE: 20210502
